FAERS Safety Report 4369913-3 (Version None)
Quarter: 2004Q2

REPORT INFORMATION
  Report Type: 
  Country: None (occurrence: None)
  Receive Date: 20040525
  Receipt Date: 20040510
  Transmission Date: 20050107
  Serious: Yes (Other)
  Sender: FDA-Public Use
  Company Number: NL-JNJFOC-20040502885

PATIENT
  Sex: Female

DRUGS (1)
  1. MICONAZOLE [Suspect]
     Indication: ORAL CANDIDIASIS
     Dosage: 2.5 ML, 4 IN 1 DAY, ORAL
     Route: 048
     Dates: start: 20040312, end: 20040312

REACTIONS (4)
  - CIRCULATORY COLLAPSE [None]
  - DYSPNOEA [None]
  - NEONATAL DISORDER [None]
  - SKIN DISCOLOURATION [None]
